FAERS Safety Report 5004819-8 (Version None)
Quarter: 2006Q2

REPORT INFORMATION
  Report Type: 
  Country: None (occurrence: None)
  Receive Date: 20060517
  Receipt Date: 20060511
  Transmission Date: 20061013
  Serious: Yes (Hospitalization)
  Sender: FDA-Public Use
  Company Number: FR-MERCK-0605FRA00039

PATIENT
  Age: 70 Year
  Sex: Male

DRUGS (7)
  1. NOROXIN [Suspect]
     Indication: INFECTION PROPHYLAXIS
     Route: 048
     Dates: start: 20060427, end: 20060503
  2. NOROXIN [Suspect]
     Indication: ASCITES
     Route: 048
     Dates: start: 20060427, end: 20060503
  3. ACETAMINOPHEN [Suspect]
     Indication: OSTEOARTHRITIS
     Route: 048
     Dates: end: 20060503
  4. ZOPICLONE [Suspect]
     Indication: INSOMNIA
     Route: 048
     Dates: end: 20060503
  5. BENFLUOREX HYDROCHLORIDE [Concomitant]
     Route: 048
  6. METFORMIN HYDROCHLORIDE [Concomitant]
     Indication: DIABETES MELLITUS NON-INSULIN-DEPENDENT
     Route: 048
  7. PROPRANOLOL HYDROCHLORIDE [Concomitant]
     Route: 048

REACTIONS (1)
  - PANCYTOPENIA [None]
